FAERS Safety Report 11055505 (Version 1)
Quarter: 2015Q2

REPORT INFORMATION
  Report Type: Spontaneous
  Country: US (occurrence: None)
  Receive Date: 20150421
  Receipt Date: 20150421
  Transmission Date: 20150821
  Serious: Yes (Life-Threatening, Disabling, Other)
  Sender: FDA-Public Use
  Company Number: None

PATIENT
  Age: 57 Year
  Sex: Male
  Weight: 84.82 kg

DRUGS (18)
  1. HYDROQUINONE. [Concomitant]
     Active Substance: HYDROQUINONE
  2. CONDROITON [Concomitant]
  3. RED KRILL OIL [Concomitant]
  4. FLOMAX [Concomitant]
     Active Substance: TAMSULOSIN HYDROCHLORIDE
  5. BENZACLIN GEL [Concomitant]
  6. MSM [Concomitant]
     Active Substance: DIMETHYL SULFONE
  7. COTRIMOXAZOLE [Suspect]
     Active Substance: SULFAMETHOXAZOLE\TRIMETHOPRIM
     Indication: EPIDIDYMITIS
     Dosage: 1 PILL 2X DAILY BY MOUTH
     Route: 048
     Dates: start: 20150411, end: 20150414
  8. TAZORAC [Concomitant]
     Active Substance: TAZAROTENE
  9. GNC MEGA-MEN MULTI VITAMIN [Concomitant]
  10. ASPIRIN. [Concomitant]
     Active Substance: ASPIRIN
  11. LIPITOR [Concomitant]
     Active Substance: ATORVASTATIN CALCIUM
  12. COTRIMOXAZOLE [Suspect]
     Active Substance: SULFAMETHOXAZOLE\TRIMETHOPRIM
     Indication: EPIDIDYMAL CYST
     Dosage: 1 PILL 2X DAILY BY MOUTH
     Route: 048
     Dates: start: 20150411, end: 20150414
  13. ROBAXIN [Concomitant]
     Active Substance: METHOCARBAMOL
  14. GLUCOSAMIN [Concomitant]
  15. COLACE [Concomitant]
     Active Substance: DOCUSATE SODIUM
  16. TYLENOL WITH CODEINE [Concomitant]
     Active Substance: ACETAMINOPHEN\CODEINE PHOSPHATE
  17. BENZOYL PEROXIDE. [Concomitant]
     Active Substance: BENZOYL PEROXIDE
  18. ISOTRETINOIN [Concomitant]
     Active Substance: ISOTRETINOIN

REACTIONS (16)
  - Confusional state [None]
  - Myalgia [None]
  - Skin exfoliation [None]
  - Hyperhidrosis [None]
  - Weight decreased [None]
  - Somnolence [None]
  - Penile swelling [None]
  - Decreased appetite [None]
  - Dysuria [None]
  - Headache [None]
  - Penile blister [None]
  - Erythema [None]
  - Blood pressure increased [None]
  - Asthenia [None]
  - Corneal disorder [None]
  - Fatigue [None]

NARRATIVE: CASE EVENT DATE: 20150411
